FAERS Safety Report 7928223-5 (Version None)
Quarter: 2011Q4

REPORT INFORMATION
  Report Type: 
  Country: None (occurrence: None)
  Receive Date: 20111118
  Receipt Date: 20111109
  Transmission Date: 20120403
  Serious: Yes (Hospitalization)
  Sender: FDA-Public Use
  Company Number: US-NOVOPROD-339151

PATIENT

DRUGS (2)
  1. VICTOZA [Suspect]
     Indication: TYPE 2 DIABETES MELLITUS
     Dosage: UNKNOWN
     Route: 058
     Dates: start: 20110701, end: 20111001
  2. HUMIRA [Concomitant]
     Indication: PSORIASIS

REACTIONS (4)
  - PYREXIA [None]
  - VOMITING [None]
  - NAUSEA [None]
  - SMALL INTESTINE CARCINOMA STAGE IV [None]
